FAERS Safety Report 12954804 (Version 1)
Quarter: 2016Q4

REPORT INFORMATION
  Report Type: Spontaneous
  Country: US (occurrence: US)
  Receive Date: 20161117
  Receipt Date: 20161117
  Transmission Date: 20170207
  Serious: Yes (Disabling)
  Sender: FDA-Public Use
  Company Number: None

PATIENT
  Age: 67 Year
  Sex: Female
  Weight: 71.1 kg

DRUGS (2)
  1. ATORVASTATIN [Suspect]
     Active Substance: ATORVASTATIN
     Indication: DRUG THERAPY
  2. THYROID [Concomitant]
     Active Substance: LEVOTHYROXINE\LIOTHYRONINE

REACTIONS (9)
  - Feeling abnormal [None]
  - Depression [None]
  - Pain [None]
  - Muscle injury [None]
  - Memory impairment [None]
  - Blood glucose increased [None]
  - Fatigue [None]
  - Pain in extremity [None]
  - Grip strength decreased [None]

NARRATIVE: CASE EVENT DATE: 20150507
